FAERS Safety Report 5807125-4 (Version None)
Quarter: 2008Q3

REPORT INFORMATION
  Report Type: 
  Country: None (occurrence: None)
  Receive Date: 20080709
  Receipt Date: 20080709
  Transmission Date: 20090109
  Serious: Yes (Life-Threatening)
  Sender: FDA-Public Use
  Company Number: None

PATIENT
  Age: 69 Year
  Sex: Female
  Weight: 112.4921 kg

DRUGS (1)
  1. ASMANEX TWISTHALER [Suspect]
     Indication: RESPIRATORY DISORDER
     Dosage: ONE DOSE 2 TIMES A DAT PO
     Route: 048
     Dates: start: 20080611, end: 20080707

REACTIONS (6)
  - CARDIAC DISORDER [None]
  - CHEST PAIN [None]
  - DEPRESSION [None]
  - FATIGUE [None]
  - HEART RATE DECREASED [None]
  - HYPOTENSION [None]
